FAERS Safety Report 13040741 (Version 1)
Quarter: 2016Q4

REPORT INFORMATION
  Report Type: Spontaneous
  Country: US (occurrence: US)
  Receive Date: 20161219
  Receipt Date: 20161219
  Transmission Date: 20170207
  Serious: Yes (Other)
  Sender: FDA-Public Use
  Company Number: US-PFIZER INC-2016578879

PATIENT
  Age: 13 Year
  Sex: Female

DRUGS (3)
  1. DECITABINE. [Suspect]
     Active Substance: DECITABINE
     Dosage: UNK
     Dates: start: 201608
  2. METHOTREXATE SODIUM. [Suspect]
     Active Substance: METHOTREXATE SODIUM
     Dosage: UNK
     Dates: start: 201608
  3. VORINOSTAT [Suspect]
     Active Substance: VORINOSTAT
     Dosage: UNK
     Dates: start: 201608

REACTIONS (4)
  - Appendicitis [Unknown]
  - Herpes simplex [Unknown]
  - Escherichia bacteraemia [Unknown]
  - Streptococcal bacteraemia [Unknown]
